FAERS Safety Report 12608567 (Version 1)
Quarter: 2016Q3

REPORT INFORMATION
  Report Type: Spontaneous
  Country: BR (occurrence: BR)
  Receive Date: 20160729
  Receipt Date: 20160729
  Transmission Date: 20161109
  Serious: Yes (Other)
  Sender: FDA-Public Use
  Company Number: BR-ELI_LILLY_AND_COMPANY-BR201307003971

PATIENT
  Age: 74 Year
  Sex: Female
  Weight: 70 kg

DRUGS (5)
  1. LOSARTAN POTASSIUM. [Concomitant]
     Active Substance: LOSARTAN POTASSIUM
     Dosage: 50 MG, QD
  2. HUMULIN N [Suspect]
     Active Substance: INSULIN HUMAN
     Indication: DIABETES MELLITUS
     Dosage: 40 IU, EACH MORNING
     Route: 058
     Dates: start: 2011
  3. HUMULIN N [Suspect]
     Active Substance: INSULIN HUMAN
     Dosage: 20 IU, EACH EVENING
     Route: 058
     Dates: start: 2011
  4. BENERVA [Concomitant]
     Active Substance: THIAMINE
     Indication: IMMUNE SYSTEM DISORDER
     Dosage: UNK, QD
  5. AAS [Concomitant]
     Active Substance: ASPIRIN
     Indication: ANTIPLATELET THERAPY

REACTIONS (12)
  - Blindness unilateral [Recovering/Resolving]
  - Hypoglycaemia [Recovered/Resolved]
  - Sleep disorder [Unknown]
  - Drug ineffective [Unknown]
  - Diabetic neuropathy [Not Recovered/Not Resolved]
  - Renal disorder [Unknown]
  - Blood glucose fluctuation [Not Recovered/Not Resolved]
  - Cataract [Recovering/Resolving]
  - Skin ulcer [Not Recovered/Not Resolved]
  - Impaired healing [Not Recovered/Not Resolved]
  - Eye haemorrhage [Recovering/Resolving]
  - Retinal detachment [Recovering/Resolving]

NARRATIVE: CASE EVENT DATE: 200102
